FAERS Safety Report 6010429-6 (Version None)
Quarter: 2008Q4

REPORT INFORMATION
  Report Type: 
  Country: None (occurrence: None)
  Receive Date: 20081218
  Receipt Date: 20071212
  Transmission Date: 20090506
  Serious: No
  Sender: FDA-Public Use
  Company Number: US-AMGEN-KDL256605

PATIENT
  Sex: Female

DRUGS (4)
  1. ENBREL [Suspect]
     Indication: RHEUMATOID ARTHRITIS
     Route: 058
     Dates: start: 20070908
  2. ARAVA [Concomitant]
     Route: 048
     Dates: start: 20070401
  3. PLAQUENIL [Concomitant]
     Dates: start: 20060601
  4. AZULFIDINE EN-TABS [Concomitant]
     Route: 048
     Dates: start: 20060601

REACTIONS (7)
  - ANAEMIA [None]
  - ASTHMA [None]
  - DYSPNOEA [None]
  - INJECTION SITE ERYTHEMA [None]
  - INJECTION SITE PAIN [None]
  - INJECTION SITE PRURITUS [None]
  - INJECTION SITE RASH [None]
